FAERS Safety Report 8859603 (Version 3)
Quarter: 2013Q2

REPORT INFORMATION
  Report Type: Spontaneous
  Country: US (occurrence: US)
  Receive Date: 20121025
  Receipt Date: 20130508
  Transmission Date: 20140414
  Serious: No
  Sender: FDA-Public Use
  Company Number: US-009507513-1209USA008683

PATIENT
  Age: 36 Year
  Sex: Female
  Weight: 59.86 kg

DRUGS (3)
  1. NEXPLANON [Suspect]
     Indication: CONTRACEPTION
     Dosage: UNK
     Dates: start: 20100318
  2. ADDERALL TABLETS [Concomitant]
  3. SERTRALINE HYDROCHLORIDE [Concomitant]

REACTIONS (1)
  - Haemorrhage [Recovered/Resolved]
